FAERS Safety Report 7604318-0 (Version None)
Quarter: 2011Q2

REPORT INFORMATION
  Report Type: 
  Country: None (occurrence: None)
  Receive Date: 20110630
  Receipt Date: 20090818
  Transmission Date: 20111010
  Serious: Yes (Other)
  Sender: FDA-Public Use
  Company Number: DSJ-2009-10529

PATIENT
  Age: 69 Year
  Sex: Male
  Weight: 54.9 kg

DRUGS (7)
  1. FAMOGAST D (FAMOTIDINE) (TABLET) (FAMOTIDINE) [Concomitant]
  2. LOCHOL (FLUVASTATIN SODIUM)(TABLET) (FLUVASTATIN SODIUM) [Suspect]
     Indication: DYSLIPIDAEMIA
     Dosage: 30 MG,PER ORAL
     Route: 048
     Dates: start: 20090713
  3. ASPIRIN [Suspect]
     Indication: ANGINA PECTORIS
     Dosage: 100 MG,PER ORAL
     Route: 048
     Dates: start: 20090810, end: 20090812
  4. CS-747S [Suspect]
     Indication: CORONARY ARTERY DISEASE
     Dosage: LD/MD=20MG/3.75MG (1 IN 1 D),PER ORAL
     Route: 048
     Dates: start: 20090811, end: 20090812
  5. OLMESARTAN MEDOXOMIL [Suspect]
     Indication: HYPERTENSION
     Dosage: 20 MG, PER ORAL
     Route: 048
     Dates: start: 20090526
  6. ALLOPURINOL [Concomitant]
  7. NORVASC [Suspect]
     Indication: HYPERTENSION
     Dosage: 10 MG,PER ORAL
     Dates: start: 20090710

REACTIONS (9)
  - COLONIC POLYP [None]
  - EROSIVE DUODENITIS [None]
  - FAECAL INCONTINENCE [None]
  - ACTIVITIES OF DAILY LIVING IMPAIRED [None]
  - LARGE INTESTINAL HAEMORRHAGE [None]
  - DUODENAL ULCER HAEMORRHAGE [None]
  - ANAEMIA [None]
  - DIEULAFOY'S VASCULAR MALFORMATION [None]
  - BLOOD PRESSURE DECREASED [None]
